FAERS Safety Report 5794843-X (Version None)
Quarter: 2008Q2

REPORT INFORMATION
  Report Type: 
  Country: None (occurrence: None)
  Receive Date: 20080630
  Receipt Date: 20080616
  Transmission Date: 20081010
  Serious: Yes (Other)
  Sender: FDA-Public Use
  Company Number: GB-ROCHE-570352

PATIENT

DRUGS (1)
  1. ISOTRETINOIN [Suspect]
     Indication: ACNE
     Dosage: FORM REPORTED AS: PILL
     Route: 065
     Dates: start: 20070701, end: 20071101

REACTIONS (3)
  - EMOTIONAL DISTRESS [None]
  - SUICIDAL IDEATION [None]
  - URINARY TRACT INFECTION [None]
